FAERS Safety Report 11217604 (Version 1)
Quarter: 2015Q2

REPORT INFORMATION
  Report Type: Spontaneous
  Country: US (occurrence: None)
  Receive Date: 20150623
  Receipt Date: 20150623
  Transmission Date: 20150821
  Serious: Yes (Hospitalization, Disabling, Other)
  Sender: FDA-Public Use
  Company Number: 2015EDG00026

PATIENT
  Age: 33 Year
  Sex: Male

DRUGS (1)
  1. FLUOXETINE [Suspect]
     Active Substance: FLUOXETINE\FLUOXETINE HYDROCHLORIDE
     Indication: DEPRESSION
     Dosage: UP TO 60 MG, 1X/DAY

REACTIONS (9)
  - Blood cholesterol increased [None]
  - Paranoia [None]
  - Depression [None]
  - Low density lipoprotein increased [None]
  - Psychotic disorder [None]
  - Fatigue [None]
  - Blood triglycerides increased [None]
  - Iron binding capacity total increased [None]
  - Weight increased [None]
